FAERS Safety Report 16647397 (Version 2)
Quarter: 2019Q3

REPORT INFORMATION
  Report Type: Spontaneous
  Country: US (occurrence: US)
  Receive Date: 20190730
  Receipt Date: 20190930
  Transmission Date: 20191004
  Serious: No
  Sender: FDA-Public Use
  Company Number: US-PFIZER INC-2019320322

PATIENT
  Age: 54 Year
  Sex: Male

DRUGS (3)
  1. INLYTA [Suspect]
     Active Substance: AXITINIB
     Indication: RENAL CANCER
     Dosage: 5 MG, 2X/DAY
  2. INLYTA [Suspect]
     Active Substance: AXITINIB
     Dosage: 1 MG, 2X/DAY
  3. INLYTA [Suspect]
     Active Substance: AXITINIB
     Dosage: 6 MG, 2X/DAY

REACTIONS (1)
  - Malaise [Unknown]
